FAERS Safety Report 15814358 (Version 1)
Quarter: 2019Q1

REPORT INFORMATION
  Report Type: Spontaneous
  Country: DE (occurrence: DE)
  Receive Date: 20190111
  Receipt Date: 20190111
  Transmission Date: 20190417
  Serious: Yes (Hospitalization)
  Sender: FDA-Public Use
  Company Number: DE-BAUSCH-BL-2019-000576

PATIENT
  Age: 6 Decade
  Sex: Female

DRUGS (2)
  1. GENTAMICIN SULFATE. [Suspect]
     Active Substance: GENTAMICIN SULFATE
     Indication: PRODUCT USED FOR UNKNOWN INDICATION
     Dosage: INGREDIENT OF BONE CEMENT
     Route: 065
  2. HYDROQUINONE. [Suspect]
     Active Substance: HYDROQUINONE
     Indication: PRODUCT USED FOR UNKNOWN INDICATION
     Dosage: INGREDIENT OF BONE CEMENT
     Route: 065

REACTIONS (2)
  - Dermatitis contact [Recovering/Resolving]
  - Type IV hypersensitivity reaction [Recovering/Resolving]
